FAERS Safety Report 4667089-6 (Version None)
Quarter: 2005Q2

REPORT INFORMATION
  Report Type: 
  Country: None (occurrence: None)
  Receive Date: 20050520
  Receipt Date: 20050223
  Transmission Date: 20051028
  Serious: Yes (Other)
  Sender: FDA-Public Use
  Company Number: PHBS2005BE02965

PATIENT
  Sex: Male

DRUGS (5)
  1. REDOMEX [Concomitant]
     Route: 065
  2. TRAZOLAN [Concomitant]
     Route: 065
  3. ASAFLOW [Concomitant]
     Route: 065
  4. ZOMETA [Suspect]
     Indication: WALDENSTROM'S MACROGLOBULINAEMIA
     Route: 042
     Dates: start: 20020901, end: 20041001
  5. HYPERBARIC [Suspect]

REACTIONS (7)
  - ABSCESS [None]
  - BONE LESION EXCISION [None]
  - HYPERBARIC OXYGEN THERAPY [None]
  - OSTEOMYELITIS [None]
  - OSTEONECROSIS [None]
  - TOOTH EXTRACTION [None]
  - WOUND DEBRIDEMENT [None]
